FAERS Safety Report 5333651-0 (Version None)
Quarter: 2007Q2

REPORT INFORMATION
  Report Type: 
  Country: None (occurrence: None)
  Receive Date: 20070524
  Receipt Date: 20070521
  Transmission Date: 20071010
  Serious: Yes (Hospitalization)
  Sender: FDA-Public Use
  Company Number: A0132060A

PATIENT
  Age: 21 Year
  Sex: Female

DRUGS (19)
  1. LOTRONEX [Suspect]
     Indication: IRRITABLE BOWEL SYNDROME
     Dosage: 1MG TWICE PER DAY
     Route: 048
     Dates: start: 20000601, end: 20001101
  2. ZOFRAN [Suspect]
     Indication: NAUSEA
     Dosage: 4MG UNKNOWN
     Route: 065
  3. LACTAID [Concomitant]
  4. IMMUNE GLOBULIN INTRAVENOUS (HUMAN) [Concomitant]
  5. XANAX [Concomitant]
  6. PHENERGAN HCL [Concomitant]
  7. OXYCONTIN [Concomitant]
  8. METHOTREXATE [Concomitant]
  9. IMITREX [Concomitant]
  10. KEPPRA [Concomitant]
  11. RIFAMPIN [Concomitant]
  12. DOXYCLINE [Concomitant]
  13. SCOPOLAMINE [Concomitant]
  14. SLEEPING PILLS [Concomitant]
  15. VITAMINS [Concomitant]
  16. CRESTOR [Concomitant]
  17. MUCINEX [Concomitant]
  18. SOLU-MEDROL [Concomitant]
  19. TYLENOL [Concomitant]

REACTIONS (5)
  - ABDOMINAL PAIN [None]
  - BRUCELLOSIS [None]
  - CONSTIPATION [None]
  - DIARRHOEA [None]
  - DRUG INEFFECTIVE [None]
